FAERS Safety Report 10043324 (Version 2)
Quarter: 2014Q2

REPORT INFORMATION
  Report Type: Spontaneous
  Country: IT (occurrence: IT)
  Receive Date: 20140328
  Receipt Date: 20140403
  Transmission Date: 20141212
  Serious: Yes (Hospitalization)
  Sender: FDA-Public Use
  Company Number: IT-ACCORD-022753

PATIENT
  Age: 59 Year
  Sex: Male

DRUGS (8)
  1. LEVOFOLENE [Concomitant]
     Dates: start: 20140108, end: 20140108
  2. ONDANSETRON HOSPIRA [Concomitant]
     Route: 042
     Dates: start: 20140108, end: 20140108
  3. IRINOTECAN HOSPIRA [Suspect]
     Indication: COLON CANCER
     Route: 042
     Dates: start: 20140108, end: 20140108
  4. ACCORD^S FLUOROURACIL [Suspect]
     Indication: COLON CANCER
     Route: 042
     Dates: start: 20140108, end: 20140108
  5. SOLDESAM [Concomitant]
     Route: 042
     Dates: start: 20140108, end: 20140108
  6. ZALTRAP [Suspect]
     Indication: COLON CANCER
     Route: 042
     Dates: start: 20140108, end: 20140108
  7. RANIDIL [Concomitant]
     Route: 042
     Dates: start: 20140108, end: 20140108
  8. FLUOROURACILE TEVA [Suspect]
     Indication: COLON CANCER
     Route: 042
     Dates: start: 20140108, end: 20140108

REACTIONS (2)
  - Intestinal perforation [Recovered/Resolved]
  - Abdominal pain [Recovering/Resolving]
